FAERS Safety Report 7671955-7 (Version None)
Quarter: 2011Q3

REPORT INFORMATION
  Report Type: 
  Country: None (occurrence: None)
  Receive Date: 20110809
  Receipt Date: 20110802
  Transmission Date: 20111222
  Serious: Yes (Death, Hospitalization)
  Sender: FDA-Public Use
  Company Number: US-GLAXOSMITHKLINE-A0940111A

PATIENT
  Age: 68 Year
  Sex: Male

DRUGS (1)
  1. REQUIP [Suspect]
     Dosage: 2MG UNKNOWN
     Route: 065
     Dates: start: 20101222, end: 20110312

REACTIONS (2)
  - HOSPITALISATION [None]
  - DEATH [None]
